FAERS Safety Report 5313755-9 (Version None)
Quarter: 2007Q2

REPORT INFORMATION
  Report Type: 
  Country: None (occurrence: None)
  Receive Date: 20070501
  Receipt Date: 20070424
  Transmission Date: 20071010
  Serious: Yes (Other)
  Sender: FDA-Public Use
  Company Number: FR-BRISTOL-MYERS SQUIBB COMPANY-13763792

PATIENT
  Age: 35 Year
  Sex: Female

DRUGS (2)
  1. ERBITUX [Suspect]
     Indication: RECTAL CANCER
     Route: 042
     Dates: start: 20070409, end: 20070409
  2. POLARAMINE [Concomitant]
     Indication: PREMEDICATION

REACTIONS (6)
  - ARTHRALGIA [None]
  - CHILLS [None]
  - INFUSION RELATED REACTION [None]
  - PYREXIA [None]
  - STUPOR [None]
  - URTICARIA [None]
